FAERS Safety Report 25955001 (Version 1)
Quarter: 2025Q4

REPORT INFORMATION
  Report Type: Report from Study
  Country: CN (occurrence: CN)
  Receive Date: 20251024
  Receipt Date: 20251024
  Transmission Date: 20260117
  Serious: Yes (Other)
  Sender: ROCHE
  Company Number: CN-ROCHE-10000415094

PATIENT
  Age: 72 Year
  Sex: Male
  Weight: 65 kg

DRUGS (28)
  1. POLATUZUMAB VEDOTIN [Suspect]
     Active Substance: POLATUZUMAB VEDOTIN
     Indication: Diffuse large B-cell lymphoma
     Dosage: MOST RECENT DOSE: 15-FEB-2025
     Route: 042
     Dates: start: 20250124, end: 20250124
  2. RITUXIMAB [Suspect]
     Active Substance: RITUXIMAB
     Indication: Diffuse large B-cell lymphoma
     Dosage: MOST RECENT DOSE: 15-FEB-2025
     Route: 042
     Dates: start: 20250124, end: 20250124
  3. CYCLOPHOSPHAMIDE [Suspect]
     Active Substance: CYCLOPHOSPHAMIDE
     Indication: Diffuse large B-cell lymphoma
     Dosage: MOST RECENT DOSE: 15-FEB-2025
     Route: 042
     Dates: start: 20250124, end: 20250125
  4. EPIRUBICIN [Suspect]
     Active Substance: EPIRUBICIN
     Indication: Diffuse large B-cell lymphoma
     Dosage: MOST RECENT DOSE: 15-FEB-2025
     Route: 042
     Dates: start: 20250124, end: 20250125
  5. DEXAMETHASONE [Suspect]
     Active Substance: DEXAMETHASONE
     Indication: Diffuse large B-cell lymphoma
     Route: 042
     Dates: start: 20250124, end: 20250125
  6. PREDNISONE [Suspect]
     Active Substance: PREDNISONE
     Indication: Diffuse large B-cell lymphoma
     Dosage: MOST RECENT DOSE: 16-FEB-2025
     Route: 048
  7. POTASSIUM CHLORIDE [Concomitant]
     Active Substance: POTASSIUM CHLORIDE
  8. INSULIN HUMAN [Concomitant]
     Active Substance: INSULIN HUMAN
  9. LEVOFLOXACIN [Concomitant]
     Active Substance: LEVOFLOXACIN
  10. MICAFUNGIN [Concomitant]
     Active Substance: MICAFUNGIN SODIUM
  11. SODIUM BICARBONATE [Concomitant]
     Active Substance: SODIUM BICARBONATE
  12. FUROSEMIDE [Concomitant]
     Active Substance: FUROSEMIDE
  13. MESNA [Concomitant]
     Active Substance: MESNA
  14. DEXRAZOXANE [Concomitant]
     Active Substance: DEXRAZOXANE
  15. ESOMEPRAZOLE SODIUM [Concomitant]
     Active Substance: ESOMEPRAZOLE SODIUM
  16. ONDANSETRON [Concomitant]
     Active Substance: ONDANSETRON
  17. DEXAMETHASONE SODIUM PHOSPHATE [Concomitant]
     Active Substance: DEXAMETHASONE SODIUM PHOSPHATE
  18. OMEPRAZOLE SODIUM [Concomitant]
     Active Substance: OMEPRAZOLE SODIUM
  19. CALCIUM GLUCONATE [Concomitant]
     Active Substance: CALCIUM GLUCONATE
  20. PROMETHAZINE [Concomitant]
     Active Substance: PROMETHAZINE HYDROCHLORIDE
  21. METOPROLOL [Concomitant]
     Active Substance: METOPROLOL
  22. ESMOLOL [Concomitant]
     Active Substance: ESMOLOL HYDROCHLORIDE
  23. ATORVASTATIN [Concomitant]
     Active Substance: ATORVASTATIN
  24. Clostridium butyricum [Concomitant]
  25. GRANULOCYTE COLONY-STIMULATING FACTOR NOS [Concomitant]
     Active Substance: GRANULOCYTE COLONY-STIMULATING FACTOR NOS
  26. FLUCONAZOLE [Concomitant]
     Active Substance: FLUCONAZOLE
  27. ENTECAVIR [Concomitant]
     Active Substance: ENTECAVIR
  28. CHLORHEXIDINE GLUCONATE [Concomitant]
     Active Substance: CHLORHEXIDINE GLUCONATE

REACTIONS (3)
  - Myocardial ischaemia [Not Recovered/Not Resolved]
  - Thrombocytopenia [Not Recovered/Not Resolved]
  - Arrhythmia [Not Recovered/Not Resolved]

NARRATIVE: CASE EVENT DATE: 20250214
